FAERS Safety Report 15581118 (Version 3)
Quarter: 2018Q4

REPORT INFORMATION
  Report Type: Spontaneous
  Country: US (occurrence: US)
  Receive Date: 20181102
  Receipt Date: 20181119
  Transmission Date: 20190205
  Serious: Yes (Other)
  Sender: FDA-Public Use
  Company Number: US-JAZZ-JPI-P-014367

PATIENT
  Sex: Female

DRUGS (8)
  1. XYREM [Suspect]
     Active Substance: SODIUM OXYBATE
     Dosage: 4.5 G, BID
     Route: 048
     Dates: start: 20090625, end: 201011
  2. XYREM [Suspect]
     Active Substance: SODIUM OXYBATE
     Indication: FIBROMYALGIA
     Dosage: SINGLE (TITRATING DOSE)
     Route: 048
  3. XYREM [Suspect]
     Active Substance: SODIUM OXYBATE
     Dosage: 2.25 G, BID
     Route: 048
     Dates: start: 201101, end: 2011
  4. XYREM [Suspect]
     Active Substance: SODIUM OXYBATE
     Dosage: 4.5 G, BID
     Route: 048
     Dates: start: 2011
  5. XYREM [Suspect]
     Active Substance: SODIUM OXYBATE
     Dosage: SINGLE (TITRATING DOSE)
     Route: 048
     Dates: start: 2011, end: 2011
  6. KLOR-CON [Suspect]
     Active Substance: POTASSIUM CHLORIDE
     Indication: PRODUCT USED FOR UNKNOWN INDICATION
  7. XYREM [Suspect]
     Active Substance: SODIUM OXYBATE
     Indication: NARCOLEPSY
     Route: 048
     Dates: start: 20090630
  8. XYREM [Suspect]
     Active Substance: SODIUM OXYBATE
     Dosage: UNK

REACTIONS (18)
  - Food craving [Not Recovered/Not Resolved]
  - Condition aggravated [Recovered/Resolved]
  - Hyperphagia [Not Recovered/Not Resolved]
  - Therapeutic response decreased [Unknown]
  - Wrong technique in product usage process [Unknown]
  - Type 2 diabetes mellitus [Recovered/Resolved]
  - Abscess limb [Unknown]
  - Abdominal discomfort [Unknown]
  - Poor quality sleep [Not Recovered/Not Resolved]
  - Weight increased [Recovering/Resolving]
  - Impaired gastric emptying [Unknown]
  - Depression [Not Recovered/Not Resolved]
  - Memory impairment [Unknown]
  - Rheumatoid arthritis [Not Recovered/Not Resolved]
  - Condition aggravated [Not Recovered/Not Resolved]
  - Hypertension [Not Recovered/Not Resolved]
  - Condition aggravated [Unknown]
  - Abnormal sleep-related event [Unknown]

NARRATIVE: CASE EVENT DATE: 2010
